FAERS Safety Report 7414154-6 (Version None)
Quarter: 2011Q2

REPORT INFORMATION
  Report Type: 
  Country: None (occurrence: None)
  Receive Date: 20110414
  Receipt Date: 20110408
  Transmission Date: 20111010
  Serious: Yes (Hospitalization)
  Sender: FDA-Public Use
  Company Number: IT-PFIZER INC-2011079802

PATIENT
  Age: 53 Year
  Sex: Female

DRUGS (4)
  1. DEPALGOS [Suspect]
     Indication: HERNIA
     Dosage: 1 DF, 1X/DAY
     Route: 048
     Dates: start: 20110304, end: 20110307
  2. TACHIDOL [Suspect]
     Indication: HERNIA
     Dosage: 1 DF, 1X/DAY
     Route: 048
     Dates: start: 20110204, end: 20110307
  3. LYRICA [Suspect]
     Indication: HERNIA
     Dosage: 75 MG, 2X/DAY
     Route: 048
     Dates: start: 20110301, end: 20110307
  4. CITALOPRAM [Concomitant]
     Dosage: 20 MG, UNK
     Route: 048

REACTIONS (3)
  - SENSORIMOTOR DISORDER [None]
  - SOMNOLENCE [None]
  - VERTIGO [None]
